FAERS Safety Report 7394327-1 (Version None)
Quarter: 2011Q2

REPORT INFORMATION
  Report Type: 
  Country: None (occurrence: None)
  Receive Date: 20110405
  Receipt Date: 20071207
  Transmission Date: 20111010
  Serious: Yes (Death, Hospitalization)
  Sender: FDA-Public Use
  Company Number: BR-BRISTOL-MYERS SQUIBB COMPANY-13978317

PATIENT
  Age: 30 Year
  Sex: Male

DRUGS (3)
  1. EFAVIRENZ [Suspect]
     Indication: HIV INFECTION
     Route: 048
  2. DIDANOSINE [Suspect]
     Indication: HIV INFECTION
  3. STAVUDINE [Suspect]
     Indication: HIV INFECTION

REACTIONS (16)
  - DYSPNOEA [None]
  - ASTHENIA [None]
  - HYPOAESTHESIA [None]
  - MUSCULAR WEAKNESS [None]
  - VOMITING [None]
  - OLIGURIA [None]
  - CYANOSIS [None]
  - HYPOTENSION [None]
  - PAIN IN EXTREMITY [None]
  - COUGH [None]
  - LACTIC ACIDOSIS [None]
  - PYREXIA [None]
  - DEHYDRATION [None]
  - CHEST PAIN [None]
  - TACHYPNOEA [None]
  - DIZZINESS [None]
